FAERS Safety Report 9430356 (Version 1)
Quarter: 2013Q3

REPORT INFORMATION
  Report Type: Spontaneous
  Country: US (occurrence: US)
  Receive Date: 20130730
  Receipt Date: 20130730
  Transmission Date: 20140515
  Serious: No
  Sender: FDA-Public Use
  Company Number: US-ABBOTT-13P-163-1083028-00

PATIENT
  Sex: Male
  Weight: 70.37 kg

DRUGS (12)
  1. NIASPAN (COATED) [Suspect]
     Indication: BLOOD CHOLESTEROL INCREASED
     Dates: start: 201301
  2. NIASPAN (COATED) [Suspect]
     Indication: BLOOD TRIGLYCERIDES INCREASED
  3. METOPROLOL [Concomitant]
     Indication: HYPERTENSION
  4. COMBIGAN [Concomitant]
     Indication: GLAUCOMA
     Dosage: EYE DROPS
  5. DORZOLAMIDE [Concomitant]
     Indication: GLAUCOMA
     Dosage: EYE DROPS
  6. TRAVATAN Z [Concomitant]
     Indication: GLAUCOMA
     Dosage: EYE DROPS
  7. NORVASC [Concomitant]
     Indication: HYPERTENSION
  8. SIMVASTATIN [Concomitant]
     Indication: BLOOD CHOLESTEROL INCREASED
  9. ARICEPT [Concomitant]
     Indication: AMNESIA
  10. ASPIRIN [Concomitant]
     Indication: CARDIOVASCULAR EVENT PROPHYLAXIS
  11. FISH OIL [Concomitant]
     Indication: SUPPLEMENTATION THERAPY
  12. NORCO [Concomitant]
     Indication: PAIN

REACTIONS (2)
  - Product lot number issue [Unknown]
  - Flushing [Recovered/Resolved]
